FAERS Safety Report 8919000 (Version 1)
Quarter: 2012Q4

REPORT INFORMATION
  Report Type: 
  Country: US (occurrence: US)
  Receive Date: 20121121
  Receipt Date: 20121121
  Transmission Date: 20130627
  Serious: No
  Sender: FDA-Public Use
  Company Number: US-JNJFOC-20121012257

PATIENT
  Age: 24 Year
  Sex: Female

DRUGS (7)
  1. INVEGA SUSTENNA [Suspect]
     Indication: SCHIZOAFFECTIVE DISORDER
     Dosage: first initiation dose
     Route: 030
     Dates: start: 20121017
  2. AN UNKNOWN MEDICATION [Concomitant]
     Route: 065
  3. COLACE [Concomitant]
     Route: 065
  4. AN UNKNOWN MEDICATION [Concomitant]
     Route: 065
  5. AN UNKNOWN MEDICATION [Concomitant]
     Route: 065
  6. DEPAKENE SYRUP [Concomitant]
     Route: 065
  7. PRILOSEC [Concomitant]
     Route: 065

REACTIONS (3)
  - Accidental exposure to product [Unknown]
  - Underdose [Unknown]
  - Device leakage [Unknown]
